FAERS Safety Report 7492108-1 (Version None)
Quarter: 2011Q1

REPORT INFORMATION
  Report Type: 
  Country: None (occurrence: None)
  Receive Date: 20110318
  Receipt Date: 20100202
  Transmission Date: 20110831
  Serious: Yes (Other)
  Sender: FDA-Public Use
  Company Number: 2007SP021132

PATIENT
  Age: 37 Year
  Sex: Female
  Weight: 58.0604 kg

DRUGS (4)
  1. PEG-INTRON [Suspect]
     Indication: HEPATITIS C
     Dosage: 80 MCG; QW; SC
     Route: 058
     Dates: start: 20070913, end: 20071005
  2. RIBAVIRIN [Suspect]
     Indication: HEPATITIS C
     Dosage: 400 MG; BID; PO
     Route: 048
     Dates: start: 20070915, end: 20071005
  3. NEXIUM [Concomitant]
  4. EFFEXOR [Concomitant]

REACTIONS (3)
  - RASH GENERALISED [None]
  - INJECTION SITE VESICLES [None]
  - INJECTION SITE RASH [None]
